FAERS Safety Report 4392587-2 (Version None)
Quarter: 2004Q3

REPORT INFORMATION
  Report Type: 
  Country: None (occurrence: None)
  Receive Date: 20040702
  Receipt Date: 20040620
  Transmission Date: 20050211
  Serious: Yes (Disabling)
  Sender: FDA-Public Use
  Company Number: URSO-2004-009

PATIENT

DRUGS (9)
  1. URSOSAN TABLETS 50 MG (URSODEOXYCHOLIC ACID) [Suspect]
     Dosage: 150 MG  PO
     Route: 048
  2. THEO-DUR [Suspect]
  3. GALLE DONAU (NICOTINIC ACID, NAPHTHYL ACETYLSALICYLIC ACID) [Concomitant]
  4. CIMETIRAN (CIMETIDINE) [Concomitant]
  5. CAMOSTATE (CAMOSTAT MESILATE) [Concomitant]
  6. CLARITHROMYCIN [Concomitant]
  7. SINGULAIR [Concomitant]
  8. BISOLVON (BROMHEXINE HYDROCHLORIDE) [Concomitant]
  9. FORIT (OXYPERTINE) [Concomitant]

REACTIONS (1)
  - ANAEMIA [None]
